FAERS Safety Report 22321008 (Version 1)
Quarter: 2023Q2

REPORT INFORMATION
  Report Type: Spontaneous
  Country: US (occurrence: None)
  Receive Date: 20230512
  Receipt Date: 20230512
  Transmission Date: 20230722
  Serious: No
  Sender: FDA-Public Use
  Company Number: None

PATIENT
  Age: 59 Year
  Sex: Female
  Weight: 151.05 kg

DRUGS (22)
  1. WELIREG [Suspect]
     Active Substance: BELZUTIFAN
     Indication: Product used for unknown indication
     Dosage: FREQUENCY : DAILY;?
     Route: 048
  2. ALLOPURINOL [Concomitant]
  3. AMLODIPINE [Concomitant]
     Active Substance: AMLODIPINE BESYLATE
  4. CALCIUM CARBONATE-VIT D [Concomitant]
  5. DEXAMETHASONE [Concomitant]
     Active Substance: DEXAMETHASONE
  6. GABAPENTIN [Concomitant]
     Active Substance: GABAPENTIN
  7. LEVOTHYROXINE [Concomitant]
     Active Substance: LEVOTHYROXINE
  8. LIDOCAINE [Concomitant]
     Active Substance: LIDOCAINE
  9. LIOTHYRONINE [Concomitant]
     Active Substance: LIOTHYRONINE
  10. LOMOTIL [Concomitant]
  11. LOSARTAN [Concomitant]
     Active Substance: LOSARTAN
  12. MUPIROCIN [Concomitant]
     Active Substance: MUPIROCIN
  13. NARCAN [Concomitant]
     Active Substance: NALOXONE HYDROCHLORIDE
  14. NOVOLOG [Concomitant]
     Active Substance: INSULIN ASPART
  15. NYSTATIN [Concomitant]
     Active Substance: NYSTATIN
  16. ONDANSETRON [Concomitant]
     Active Substance: ONDANSETRON
  17. OXYCODONE [Concomitant]
     Active Substance: OXYCODONE
  18. SIMVASTATIN [Concomitant]
     Active Substance: SIMVASTATIN
  19. TRESIBA [Concomitant]
     Active Substance: INSULIN DEGLUDEC
  20. TRIAMCINOLONE [Concomitant]
     Active Substance: TRIAMCINOLONE
  21. TRULICITY [Concomitant]
     Active Substance: DULAGLUTIDE
  22. WARFARIN [Concomitant]
     Active Substance: WARFARIN

REACTIONS (1)
  - Hospice care [None]
